FAERS Safety Report 9222706 (Version 2)
Quarter: 2014Q3

REPORT INFORMATION
  Report Type: Spontaneous
  Country: FR (occurrence: FR)
  Receive Date: 20130410
  Receipt Date: 20140828
  Transmission Date: 20150326
  Serious: Yes (Hospitalization)
  Sender: FDA-Public Use
  Company Number: FR-PFIZER INC-2013113239

PATIENT
  Age: 52 Year
  Sex: Female

DRUGS (13)
  1. DUROGESIC [Concomitant]
     Active Substance: FENTANYL
     Dosage: 37.5 UG, UNK
     Route: 062
  2. LYSODREN [Suspect]
     Active Substance: MITOTANE
     Dosage: UNK
     Route: 065
     Dates: start: 201304
  3. EUPANTOL [Suspect]
     Active Substance: PANTOPRAZOLE SODIUM
     Dosage: 40 MG, 2X/DAY
     Route: 048
  4. HYDROCORTISONE. [Concomitant]
     Active Substance: HYDROCORTISONE
     Indication: ADDISON^S DISEASE
     Dosage: 10 MG, UNK
     Route: 048
  5. LIPANTHYL [Concomitant]
     Active Substance: FENOFIBRATE
     Indication: HYPERTRIGLYCERIDAEMIA
     Dosage: 160 MG, 1X/DAY
     Route: 048
     Dates: start: 2012
  6. DOLIPRANE [Concomitant]
     Active Substance: ACETAMINOPHEN
     Indication: DYSPEPSIA
     Dosage: 1000 MG, UNK
     Route: 048
     Dates: start: 20130114
  7. LYSODREN [Suspect]
     Active Substance: MITOTANE
     Indication: ADRENOCORTICAL CARCINOMA
     Dosage: 3 G, DAILY
     Route: 048
     Dates: start: 201201, end: 20130102
  8. SEROPRAM [Concomitant]
     Active Substance: CITALOPRAM HYDROBROMIDE
     Dosage: 20 MG, UNK
     Route: 048
     Dates: start: 20130114
  9. ZOPHREN [Concomitant]
     Active Substance: ONDANSETRON
     Indication: DYSPEPSIA
     Dosage: 8 MG, UNK
     Route: 048
  10. ARIXTRA [Concomitant]
     Active Substance: FONDAPARINUX SODIUM
     Dosage: 2.5/0.5 MG/ML
     Route: 058
  11. OMACOR [Concomitant]
     Active Substance: OMEGA-3-ACID ETHYL ESTERS
     Indication: HYPERTRIGLYCERIDAEMIA
     Dosage: 1 G, UNK
     Route: 048
  12. MOTILIUM [Concomitant]
     Active Substance: DOMPERIDONE
     Dosage: 3 DF, IF REQUIRED
     Route: 048
     Dates: start: 20130114
  13. LEXOMIL [Concomitant]
     Active Substance: BROMAZEPAM
     Dosage: 12 MG, UNK
     Route: 048
     Dates: start: 20130114

REACTIONS (2)
  - Pancreatitis acute [Not Recovered/Not Resolved]
  - Hypertriglyceridaemia [Recovering/Resolving]

NARRATIVE: CASE EVENT DATE: 20130102
